FAERS Safety Report 7176133-6 (Version None)
Quarter: 2010Q4

REPORT INFORMATION
  Report Type: 
  Country: None (occurrence: None)
  Receive Date: 20101220
  Receipt Date: 20101209
  Transmission Date: 20110411
  Serious: No
  Sender: FDA-Public Use
  Company Number: US-BIOGENIDEC-2010BI043418

PATIENT
  Age: 42 Year
  Sex: Female

DRUGS (3)
  1. TYSABRI [Suspect]
     Indication: MULTIPLE SCLEROSIS
     Route: 042
     Dates: start: 20101115
  2. AVONEX [Concomitant]
     Indication: MULTIPLE SCLEROSIS
     Route: 030
     Dates: start: 20100901
  3. AVONEX [Concomitant]
     Route: 030
     Dates: start: 20100924

REACTIONS (5)
  - ARTHRALGIA [None]
  - DIZZINESS [None]
  - INCREASED UPPER AIRWAY SECRETION [None]
  - NASOPHARYNGITIS [None]
  - VISION BLURRED [None]
